FAERS Safety Report 17080342 (Version 1)
Quarter: 2019Q4

REPORT INFORMATION
  Report Type: Report from Study
  Country: None (occurrence: US)
  Receive Date: 20191127
  Receipt Date: 20191127
  Transmission Date: 20200122
  Serious: Yes (Hospitalization, Other)
  Sender: FDA-Public Use
  Company Number: US-ABBVIE-19K-163-3138165-00

PATIENT
  Age: 79 Year
  Sex: Male

DRUGS (9)
  1. IMBRUVICA [Suspect]
     Active Substance: IBRUTINIB
     Dosage: 420 MG, QD
     Route: 048
     Dates: start: 20190317
  2. IMBRUVICA [Concomitant]
     Active Substance: IBRUTINIB
     Indication: CHRONIC LYMPHOCYTIC LEUKAEMIA
     Dosage: 140 MG, QD
     Route: 048
     Dates: start: 201701
  3. IMBRUVICA [Concomitant]
     Active Substance: IBRUTINIB
     Route: 048
     Dates: start: 20170125, end: 20170925
  4. IMBRUVICA [Concomitant]
     Active Substance: IBRUTINIB
     Dosage: 140 MG, QD
     Route: 048
     Dates: start: 20180328
  5. IMBRUVICA [Suspect]
     Active Substance: IBRUTINIB
     Dosage: 420 MG, QD
     Route: 048
     Dates: start: 20180424
  6. IMBRUVICA [Concomitant]
     Active Substance: IBRUTINIB
     Route: 048
     Dates: start: 20170926, end: 20171225
  7. IMBRUVICA [Suspect]
     Active Substance: IBRUTINIB
     Indication: CHRONIC LYMPHOCYTIC LEUKAEMIA
     Dosage: 420 MG, QD
     Route: 048
     Dates: start: 20180430
  8. IMBRUVICA [Suspect]
     Active Substance: IBRUTINIB
     Dosage: 420 MG, QD
     Route: 048
     Dates: start: 20190218
  9. IMBRUVICA [Concomitant]
     Active Substance: IBRUTINIB
     Route: 048
     Dates: start: 20171226, end: 20180429

REACTIONS (8)
  - Diarrhoea [Unknown]
  - Renal neoplasm [Unknown]
  - Renal cancer [Recovering/Resolving]
  - Dysuria [Not Recovered/Not Resolved]
  - Clostridium difficile infection [Recovered/Resolved]
  - Nasopharyngitis [Recovering/Resolving]
  - Infection [Unknown]
  - Atrial fibrillation [Recovering/Resolving]

NARRATIVE: CASE EVENT DATE: 201902
